FAERS Safety Report 14786885 (Version 2)
Quarter: 2021Q2

REPORT INFORMATION
  Report Type: Spontaneous
  Country: BR (occurrence: BR)
  Receive Date: 20180420
  Receipt Date: 20210603
  Transmission Date: 20210716
  Serious: Yes (Disabling, Congenital Anomaly, Other)
  Sender: FDA-Public Use
  Company Number: BR-BIOMARINAP-BR-2018-117975

PATIENT
  Sex: Male
  Weight: 26 kg

DRUGS (1)
  1. NAGLAZYME [Suspect]
     Active Substance: GALSULFASE
     Indication: MUCOPOLYSACCHARIDOSIS VI
     Dosage: UNK UNK, QW
     Route: 042
     Dates: start: 200711

REACTIONS (5)
  - Apnoea [Unknown]
  - Carpal tunnel syndrome [Recovered/Resolved]
  - Hypokinesia [Unknown]
  - Hypokinesia [Unknown]
  - Scoliosis [Unknown]

NARRATIVE: CASE EVENT DATE: 2009
